FAERS Safety Report 11211958 (Version 3)
Quarter: 2015Q3

REPORT INFORMATION
  Report Type: Report from Study
  Country: FR (occurrence: FR)
  Receive Date: 20150623
  Receipt Date: 20150908
  Transmission Date: 20151125
  Serious: Yes (Life-Threatening, Other)
  Sender: FDA-Public Use
  Company Number: FR-TEVA-568982ISR

PATIENT
  Age: 51 Year
  Sex: Female

DRUGS (14)
  1. TOPALGIC [Concomitant]
     Active Substance: TRAMADOL
  2. PREVISCAN [Concomitant]
     Active Substance: FLUINDIONE
     Dates: end: 20150109
  3. TAZOCILLIN [Concomitant]
     Active Substance: PIPERACILLIN SODIUM\TAZOBACTAM SODIUM
     Dates: start: 20150110, end: 20150112
  4. TARGOCID [Concomitant]
     Active Substance: TEICOPLANIN
     Dates: start: 20150112
  5. INEXIUM [Concomitant]
     Active Substance: ESOMEPRAZOLE
  6. INNOHEP [Concomitant]
     Active Substance: TINZAPARIN SODIUM
     Dates: start: 20150109
  7. TIENAM [Concomitant]
     Active Substance: CILASTATIN SODIUM\IMIPENEM
     Dates: start: 20150112
  8. TAHOR [Concomitant]
     Active Substance: ATORVASTATIN CALCIUM
  9. ACUPAN [Concomitant]
     Active Substance: NEFOPAM HYDROCHLORIDE
  10. OMACETAXINE [Suspect]
     Active Substance: OMACETAXINE
     Indication: CHRONIC MYELOID LEUKAEMIA
     Route: 058
     Dates: start: 20141216
  11. PARACETAMOL [Concomitant]
     Active Substance: ACETAMINOPHEN
  12. LASILIX [Concomitant]
     Active Substance: FUROSEMIDE
  13. AMIKACIN [Concomitant]
     Active Substance: AMIKACIN
     Dates: start: 20150112
  14. ATIVAN [Concomitant]
     Active Substance: LORAZEPAM

REACTIONS (7)
  - Neutropenia [Recovered/Resolved]
  - Intentional product use issue [Unknown]
  - Pyrexia [Recovered/Resolved]
  - Axillary vein thrombosis [Unknown]
  - Respiratory distress [Unknown]
  - Bacterial sepsis [Recovered/Resolved]
  - Underdose [Unknown]

NARRATIVE: CASE EVENT DATE: 20150109
